FAERS Safety Report 21580602 (Version 3)
Quarter: 2023Q1

REPORT INFORMATION
  Report Type: Report from Study
  Country: US (occurrence: US)
  Receive Date: 20221111
  Receipt Date: 20230111
  Transmission Date: 20230418
  Serious: Yes (Hospitalization)
  Sender: FDA-Public Use
  Company Number: US-ABBVIE-4195881

PATIENT
  Sex: Female

DRUGS (3)
  1. VENCLEXTA [Suspect]
     Active Substance: VENETOCLAX
     Indication: Acute myeloid leukaemia
     Route: 048
  2. VENCLEXTA [Suspect]
     Active Substance: VENETOCLAX
     Indication: Acute myeloid leukaemia
     Dosage: TAKE 1 TABLET BY MOUTH DAILY 2 WEEK(S) ON, 2 WEEK(S) OFF OF EACH 28 DAY CYCLE
     Route: 048
  3. VENCLEXTA [Suspect]
     Active Substance: VENETOCLAX
     Indication: Acute myeloid leukaemia
     Route: 048

REACTIONS (4)
  - Off label use [Unknown]
  - White blood cell count decreased [Unknown]
  - Memory impairment [Unknown]
  - Hospitalisation [Unknown]
